FAERS Safety Report 5724084-3 (Version None)
Quarter: 2008Q2

REPORT INFORMATION
  Report Type: 
  Country: None (occurrence: None)
  Receive Date: 20080430
  Receipt Date: 20080424
  Transmission Date: 20081010
  Serious: Yes (Hospitalization)
  Sender: FDA-Public Use
  Company Number: CN-BOEHRINGER INGELHEIM GMBH, GERMANY-2008-BP-06538SG

PATIENT
  Age: 78 Year
  Sex: Male

DRUGS (3)
  1. ATROVENT HFA [Suspect]
     Route: 055
     Dates: start: 20080413, end: 20080414
  2. SPIRIVA [Suspect]
     Route: 055
     Dates: start: 20080415, end: 20080416
  3. CEFOPERAZONE SODIUM [Concomitant]
     Indication: ANTIINFLAMMATORY THERAPY
     Dates: start: 20080417, end: 20080423

REACTIONS (1)
  - DELIRIUM [None]
